FAERS Safety Report 6185609-X (Version None)
Quarter: 2009Q2

REPORT INFORMATION
  Report Type: 
  Country: None (occurrence: None)
  Receive Date: 20090511
  Receipt Date: 20090429
  Transmission Date: 20091009
  Serious: Yes (Other)
  Sender: FDA-Public Use
  Company Number: AR-PFIZER INC-2009208491

PATIENT
  Age: 62 Year

DRUGS (5)
  1. ZOLOFT [Suspect]
     Dosage: 100 MG, 1X/DAY
     Route: 048
     Dates: start: 20090329
  2. ALLOPURINOL [Concomitant]
     Dosage: UNK
     Route: 048
     Dates: start: 19990101
  3. TRIMEBUTINE MALEATE [Concomitant]
     Dosage: UNK
     Route: 048
  4. CLONAZEPAM [Concomitant]
     Route: 048
     Dates: start: 20090301
  5. ATORVASTATIN [Concomitant]
     Route: 048
     Dates: start: 20090301

REACTIONS (1)
  - GOUT [None]
